FAERS Safety Report 24706482 (Version 1)
Quarter: 2024Q4

REPORT INFORMATION
  Report Type: Spontaneous
  Country: US (occurrence: US)
  Receive Date: 20241206
  Receipt Date: 20241206
  Transmission Date: 20250115
  Serious: Yes (Other)
  Sender: FRESENIUS KABI
  Company Number: US-FreseniusKabi-FK202417991

PATIENT
  Sex: Male

DRUGS (1)
  1. HEPARIN SODIUM IN DEXTROSE [Suspect]
     Active Substance: HEPARIN SODIUM
     Indication: Product used for unknown indication
     Dosage: FOA: INJECTION?THE HEPARIN WAS PAUSED FOR SEVERAL HOURS TO ALLOW THE ANTI-XA TO RETURN TO A SAFE LEV
     Route: 041

REACTIONS (3)
  - Therapeutic product effect increased [Recovered/Resolved]
  - Epistaxis [Recovered/Resolved]
  - Haematemesis [Recovered/Resolved]

NARRATIVE: CASE EVENT DATE: 20241128
